FAERS Safety Report 9547088 (Version 1)
Quarter: 2013Q3

REPORT INFORMATION
  Report Type: Spontaneous
  Country: US (occurrence: None)
  Receive Date: 20130919
  Receipt Date: 20130919
  Transmission Date: 20140515
  Serious: Yes (Death)
  Sender: FDA-Public Use
  Company Number: UTC-037604

PATIENT
  Age: 77 Year
  Sex: Female
  Weight: 60.5 kg

DRUGS (4)
  1. REMODULIN (10 MILLIGRAM/MILLILITERS, INJECTION FOR INFUSION) (TREPROSTINIL SODIUM) [Suspect]
     Indication: PULMONARY HYPERTENSION
     Dosage: 164.16 UG/KG (0.114 UG/KG,1 IN 1 MIN), INTRAVENOUS DRIP
     Route: 041
     Dates: start: 20050311
  2. LETAIRIS (AMBRISENTAN) (TABLETS) [Concomitant]
  3. COUMADIN (WARFARIN) [Concomitant]
  4. REVATIO (SILDENAFIL CITRATE) [Concomitant]

REACTIONS (1)
  - Death [None]
